FAERS Safety Report 6166223-9 (Version None)
Quarter: 2009Q2

REPORT INFORMATION
  Report Type: 
  Country: None (occurrence: None)
  Receive Date: 20090424
  Receipt Date: 20090415
  Transmission Date: 20091009
  Serious: Yes (Other)
  Sender: FDA-Public Use
  Company Number: PHHY2009BR03041

PATIENT
  Age: 29 Year
  Sex: Female
  Weight: 53 kg

DRUGS (8)
  1. TEGRETOL [Suspect]
     Indication: CONVULSION
     Dosage: 200 MG, BID
     Route: 048
     Dates: start: 19980831
  2. TEGRETOL [Suspect]
     Indication: HEADACHE
     Dosage: 200 MG, BID
     Route: 048
  3. TEGRETOL [Suspect]
     Dosage: 400 MG, BID
     Route: 048
     Dates: end: 20090410
  4. TEGRETOL [Suspect]
     Dosage: UNK
     Dates: start: 20090414
  5. RIVOTRIL [Concomitant]
     Indication: DEPRESSION
     Dosage: 1 TABLET BEFORE SLEEPING
     Route: 048
  6. RIVOTRIL [Concomitant]
     Indication: ANXIETY
  7. RIVOTRIL [Concomitant]
     Indication: NERVOUSNESS
  8. RIVOTRIL [Concomitant]
     Indication: SOMNOLENCE

REACTIONS (7)
  - CEREBRAL DISORDER [None]
  - DEPRESSION [None]
  - DIZZINESS [None]
  - HEADACHE [None]
  - MOOD ALTERED [None]
  - SOMNOLENCE [None]
  - SPEECH DISORDER [None]
